FAERS Safety Report 6912610-8 (Version None)
Quarter: 2010Q3

REPORT INFORMATION
  Report Type: 
  Country: None (occurrence: None)
  Receive Date: 20100806
  Receipt Date: 20080808
  Transmission Date: 20110219
  Serious: No
  Sender: FDA-Public Use
  Company Number: US-PFIZER INC-2008028970

PATIENT
  Sex: Female
  Weight: 97.52 kg

DRUGS (2)
  1. DETROL [Suspect]
     Indication: URGE INCONTINENCE
     Dates: start: 20060101
  2. OXYBUTYNIN CHLORIDE [Suspect]
     Dosage: 1 EVERY 2 WEEKS
     Route: 062
     Dates: start: 20070601

REACTIONS (2)
  - DRUG INEFFECTIVE [None]
  - RASH [None]
